FAERS Safety Report 15432525 (Version 1)
Quarter: 2018Q3

REPORT INFORMATION
  Report Type: Spontaneous
  Country: GB (occurrence: GB)
  Receive Date: 20180927
  Receipt Date: 20180927
  Transmission Date: 20181010
  Serious: Yes (Other)
  Sender: FDA-Public Use
  Company Number: GB-CONCORDIA PHARMACEUTICALS INC.-E2B_00016770

PATIENT
  Age: 74 Year
  Sex: Female
  Weight: 69.85 kg

DRUGS (2)
  1. PREDNISOLONE. [Suspect]
     Active Substance: PREDNISOLONE
     Indication: CATARACT
     Dosage: PREDNISOLONE DROPS 1%  PRED FORTE 5ML
     Route: 047
     Dates: start: 20121001, end: 20121028
  2. THYROXINE [Concomitant]
     Active Substance: LEVOTHYROXINE

REACTIONS (10)
  - Fatigue [Recovering/Resolving]
  - Mental impairment [Recovering/Resolving]
  - Blood pressure decreased [Recovering/Resolving]
  - Malaise [Recovering/Resolving]
  - Energy increased [Not Recovered/Not Resolved]
  - Muscular weakness [Recovering/Resolving]
  - Psychomotor hyperactivity [Recovering/Resolving]
  - Dizziness [Recovering/Resolving]
  - Withdrawal syndrome [Recovering/Resolving]
  - Dyspnoea [Recovering/Resolving]
